FAERS Safety Report 8118158-X (Version None)
Quarter: 2012Q1

REPORT INFORMATION
  Report Type: 
  Country: None (occurrence: None)
  Receive Date: 20120207
  Receipt Date: 20120130
  Transmission Date: 20120608
  Serious: Yes (Other)
  Sender: FDA-Public Use
  Company Number: DE-BRISTOL-MYERS SQUIBB COMPANY-16374852

PATIENT

DRUGS (1)
  1. ABILIFY [Suspect]

REACTIONS (1)
  - BREAST CANCER [None]
